FAERS Safety Report 16202800 (Version 2)
Quarter: 2019Q4

REPORT INFORMATION
  Report Type: Spontaneous
  Country: BR (occurrence: BR)
  Receive Date: 20190416
  Receipt Date: 20191015
  Transmission Date: 20200122
  Serious: Yes (Hospitalization)
  Sender: FDA-Public Use
  Company Number: BR-BRISTOL-MYERS SQUIBB COMPANY-BMS-2019-035249

PATIENT
  Sex: Male

DRUGS (1)
  1. HYDREA [Suspect]
     Active Substance: HYDROXYUREA
     Indication: SICKLE CELL ANAEMIA
     Dosage: 1000 MILLIGRAM, QD
     Route: 048

REACTIONS (4)
  - Intentional product use issue [Unknown]
  - Bronchospasm [Unknown]
  - Anaemia [Unknown]
  - Thoracic outlet syndrome [Unknown]

NARRATIVE: CASE EVENT DATE: 2016
